FAERS Safety Report 19441227 (Version 2)
Quarter: 2021Q3

REPORT INFORMATION
  Report Type: Spontaneous
  Country: DE (occurrence: DE)
  Receive Date: 20210621
  Receipt Date: 20210906
  Transmission Date: 20211014
  Serious: Yes (Hospitalization, Disabling, Other)
  Sender: FDA-Public Use
  Company Number: DE-AUROBINDO-AUR-APL-2021-025697

PATIENT
  Age: 61 Year
  Sex: Female
  Weight: 63 kg

DRUGS (17)
  1. CELLCEPT [Concomitant]
     Active Substance: MYCOPHENOLATE MOFETIL\MYCOPHENOLATE MOFETIL HYDROCHLORIDE
     Dosage: 1000 MILLIGRAM, ONCE A DAY (500 MILLIGRAM/1?0?1)
     Route: 048
  2. RENVELA [Concomitant]
     Active Substance: SEVELAMER CARBONATE
     Indication: BLOOD PHOSPHORUS
     Dosage: UNK, ONCE A DAY (2?2?2)
     Route: 048
  3. SANDIMMUN [Concomitant]
     Active Substance: CYCLOSPORINE
     Dosage: 120 MILLIGRAM (60 MILLIGRAM/1?0?1 )
     Route: 048
  4. GABAPENTIN. [Concomitant]
     Active Substance: GABAPENTIN
     Dosage: 200 MICROGRAM, ONCE A DAY (100 MICROGRAM/1?0?1)
     Route: 048
  5. PANTOPRAZOLE [Suspect]
     Active Substance: PANTOPRAZOLE
     Indication: ABDOMINAL DISCOMFORT
     Dosage: 40 MILLIGRAM(40 MILLIGRAM, QD) ONCE A DAY
     Route: 048
     Dates: start: 20210812
  6. GABAPENTIN. [Concomitant]
     Active Substance: GABAPENTIN
     Indication: PAIN
     Dosage: 100 MICROGRAM/1?0?1
     Route: 048
  7. PARATHYROID HORMONE [Suspect]
     Active Substance: PARATHYROID HORMONE
     Indication: HYPOPARATHYROIDISM
     Dosage: 75 MICROGRAM 1X DAILY
     Route: 058
     Dates: start: 20180515, end: 20210601
  8. PARATHYROID HORMONE [Suspect]
     Active Substance: PARATHYROID HORMONE
     Dosage: 50 MICROGRAM, 1X/DAY:QD
     Route: 058
     Dates: start: 20180515
  9. ARANESP [Concomitant]
     Active Substance: DARBEPOETIN ALFA
     Indication: PRODUCT USED FOR UNKNOWN INDICATION
     Dosage: 80 MICROGRAM, EVERY MONTH (80 MICROGRAM/1X/MONTH)
     Route: 050
  10. CALCIUM [Concomitant]
     Active Substance: CALCIUM
     Indication: PRODUCT USED FOR UNKNOWN INDICATION
     Dosage: UNK
     Route: 065
  11. PARATHYROID HORMONE [Suspect]
     Active Substance: PARATHYROID HORMONE
     Dosage: 75 MICROGRAM 1X DAILY
     Route: 058
     Dates: start: 20210812
  12. CELLCEPT [Concomitant]
     Active Substance: MYCOPHENOLATE MOFETIL\MYCOPHENOLATE MOFETIL HYDROCHLORIDE
     Indication: POST PROCEDURAL COMPLICATION
     Dosage: 500 MILLIGRAM/1?0?1
     Route: 048
  13. PREDNISOLON [Concomitant]
     Active Substance: PREDNISOLONE
     Indication: POST PROCEDURAL COMPLICATION
     Dosage: 4 MILLIGRAM, ONCE A DAY (1?0?0 )
     Route: 048
  14. SANDIMMUN [Concomitant]
     Active Substance: CYCLOSPORINE
     Indication: POST PROCEDURAL COMPLICATION
     Dosage: 60 MILLIGRAM/1?0?1
     Route: 048
  15. PANTOPRAZOLE [Suspect]
     Active Substance: PANTOPRAZOLE
     Indication: ANTACID THERAPY
     Dosage: 80 MILLIGRAM, ONCE A DAY (40 MILLIGRAM, BID)
     Route: 048
     Dates: start: 20210812
  16. PARATHYROID HORMONE [Suspect]
     Active Substance: PARATHYROID HORMONE
     Dosage: 75 MICROGRAM 1X DAILY
     Route: 058
     Dates: start: 20180515, end: 20210812
  17. BENZBROMARON [Concomitant]
     Active Substance: BENZBROMARONE
     Indication: PRODUCT USED FOR UNKNOWN INDICATION
     Dosage: 100 MILLIGRAM/1?0?1
     Route: 048

REACTIONS (14)
  - Muscle rupture [Recovered/Resolved]
  - Renal disorder [Recovered/Resolved]
  - Mobility decreased [Recovered/Resolved with Sequelae]
  - Optic nerve injury [Recovered/Resolved with Sequelae]
  - Product dose omission issue [Recovered/Resolved]
  - Arthralgia [Recovering/Resolving]
  - Blood calcium abnormal [Recovered/Resolved]
  - Fall [Unknown]
  - Gastroenteritis [Recovered/Resolved]
  - Pain in extremity [Recovering/Resolving]
  - Asthenia [Recovered/Resolved]
  - Comminuted fracture [Recovered/Resolved]
  - Fatigue [Recovered/Resolved]
  - Hypocalcaemia [Recovered/Resolved]

NARRATIVE: CASE EVENT DATE: 20200706
